FAERS Safety Report 12697817 (Version 1)
Quarter: 2016Q3

REPORT INFORMATION
  Report Type: Not Available
  Country: None (occurrence: US)
  Receive Date: 20160830
  Receipt Date: 20160830
  Transmission Date: 20161109
  Serious: No
  Sender: FDA-Public Use
  Company Number: US-AKORN-25830

PATIENT
  Sex: Male

DRUGS (1)
  1. LACTULOSE SOLUTION,USP [Suspect]
     Active Substance: LACTULOSE

REACTIONS (1)
  - Drug ineffective [None]
